FAERS Safety Report 8031194-7 (Version None)
Quarter: 2011Q4

REPORT INFORMATION
  Report Type: 
  Country: None (occurrence: None)
  Receive Date: 20111202
  Receipt Date: 20100816
  Transmission Date: 20120403
  Serious: Yes (Hospitalization)
  Sender: FDA-Public Use
  Company Number: 2010SP044544

PATIENT
  Age: 25 Year
  Sex: Female
  Weight: 77.1115 kg

DRUGS (2)
  1. IBUPROFEN [Concomitant]
  2. NUVARING [Suspect]
     Indication: CONTRACEPTION
     Dates: start: 20040325, end: 20040621

REACTIONS (5)
  - DEEP VEIN THROMBOSIS [None]
  - OBESITY [None]
  - SYNOVIAL CYST [None]
  - GASTROOESOPHAGEAL REFLUX DISEASE [None]
  - HYPERLIPIDAEMIA [None]
